FAERS Safety Report 25288896 (Version 1)
Quarter: 2025Q2

REPORT INFORMATION
  Report Type: Report from Study
  Country: US (occurrence: US)
  Receive Date: 20250509
  Receipt Date: 20250509
  Transmission Date: 20250716
  Serious: Yes (Other)
  Sender: ABBVIE
  Company Number: US-ABBVIE-6265836

PATIENT
  Age: 79 Year
  Sex: Female

DRUGS (1)
  1. SKYRIZI [Suspect]
     Active Substance: RISANKIZUMAB-RZAA
     Indication: Crohn^s disease
     Route: 058
     Dates: start: 20250124

REACTIONS (8)
  - Small intestinal obstruction [Unknown]
  - Hyperhidrosis [Unknown]
  - Dizziness [Unknown]
  - Speech disorder [Unknown]
  - Movement disorder [Unknown]
  - Heart rate decreased [Unknown]
  - Gastric dilatation [Unknown]
  - Abdominal pain upper [Unknown]

NARRATIVE: CASE EVENT DATE: 20250101
